FAERS Safety Report 21521144 (Version 1)
Quarter: 2022Q4

REPORT INFORMATION
  Report Type: Spontaneous
  Country: JP (occurrence: JP)
  Receive Date: 20221028
  Receipt Date: 20221028
  Transmission Date: 20230112
  Serious: Yes (Hospitalization, Other)
  Sender: FDA-Public Use
  Company Number: JP-NOVARTISPH-NVSJ2021JP014894

PATIENT
  Age: 79 Year
  Sex: Female

DRUGS (3)
  1. ORGADRONE [Suspect]
     Active Substance: DEXAMETHASONE SODIUM PHOSPHATE
     Indication: Plasma cell myeloma
     Dosage: UNK DVD THERAPY
     Route: 065
  2. DARATUMUMAB [Suspect]
     Active Substance: DARATUMUMAB
     Indication: Plasma cell myeloma
     Dosage: UNK DVD THERAPY
     Route: 065
  3. BORTEZOMIB [Suspect]
     Active Substance: BORTEZOMIB
     Indication: Plasma cell myeloma
     Dosage: UNK DVD THERAPY
     Route: 065

REACTIONS (3)
  - Liver injury [Recovered/Resolved]
  - Chronic hepatitis C [Recovered/Resolved]
  - Concomitant disease aggravated [Recovered/Resolved]
